FAERS Safety Report 15248277 (Version 1)
Quarter: 2018Q3

REPORT INFORMATION
  Report Type: Spontaneous
  Country: US (occurrence: US)
  Receive Date: 20180714
  Receipt Date: 20180714
  Transmission Date: 20181010
  Serious: No
  Sender: FDA-Public Use
  Company Number: None

PATIENT
  Age: 65 Year
  Sex: Male
  Weight: 113.1 kg

DRUGS (1)
  1. RITUXIMAB (MOAB C2B8 ) [Suspect]
     Active Substance: RITUXIMAB
     Dates: end: 20180521

REACTIONS (3)
  - Visual impairment [None]
  - Vision blurred [None]
  - Retinal detachment [None]

NARRATIVE: CASE EVENT DATE: 20180709
